FAERS Safety Report 5376085-5 (Version None)
Quarter: 2007Q3

REPORT INFORMATION
  Report Type: 
  Country: None (occurrence: None)
  Receive Date: 20070702
  Receipt Date: 20070629
  Transmission Date: 20080115
  Serious: Yes (Hospitalization, Other)
  Sender: FDA-Public Use
  Company Number: A0497810A

PATIENT
  Age: 50 Year
  Sex: Female

DRUGS (12)
  1. AVANDIA [Suspect]
     Dosage: 4MG TWICE PER DAY
     Route: 048
     Dates: start: 20031001
  2. GLYBURIDE [Concomitant]
  3. CARDIZEM [Concomitant]
  4. ACCUPRIL [Concomitant]
  5. HYDROCHLOROTHIAZIDE [Concomitant]
  6. PREMARIN [Concomitant]
  7. NEURONTIN [Concomitant]
  8. ZOLOFT [Concomitant]
  9. XANAX [Concomitant]
  10. DARVOCET [Concomitant]
  11. IBUPROFEN [Concomitant]
  12. TRICOR [Concomitant]

REACTIONS (5)
  - BLOOD CHOLESTEROL INCREASED [None]
  - BLOOD TRIGLYCERIDES INCREASED [None]
  - HYPERGLYCAEMIA [None]
  - MYOCARDIAL INFARCTION [None]
  - STENT PLACEMENT [None]
